FAERS Safety Report 4361403-7 (Version None)
Quarter: 2004Q2

REPORT INFORMATION
  Report Type: 
  Country: None (occurrence: None)
  Receive Date: 20040519
  Receipt Date: 20040519
  Transmission Date: 20050107
  Serious: Yes (Hospitalization)
  Sender: FDA-Public Use
  Company Number: None

PATIENT
  Age: 52 Year
  Sex: Female

DRUGS (7)
  1. CLONAZEPAM [Suspect]
     Indication: BORDERLINE PERSONALITY DISORDER
     Dosage: 0.25 MG PO QD
     Route: 048
  2. CLONAZEPAM [Suspect]
     Indication: SCHIZOAFFECTIVE DISORDER
     Dosage: 0.25 MG PO QD
     Route: 048
  3. TOPIRAMATE [Suspect]
     Indication: BORDERLINE PERSONALITY DISORDER
     Dosage: 50 MG PO QD
     Route: 048
  4. TOPIRAMATE [Suspect]
     Indication: SCHIZOAFFECTIVE DISORDER
     Dosage: 50 MG PO QD
     Route: 048
  5. CITALOPRAM [Concomitant]
  6. RISPERIDONE [Concomitant]
  7. CLONAZEPAM [Concomitant]

REACTIONS (5)
  - AGITATION [None]
  - HYPERHIDROSIS [None]
  - INSOMNIA [None]
  - LETHARGY [None]
  - TREMOR [None]
